FAERS Safety Report 4687880-X (Version None)
Quarter: 2005Q2

REPORT INFORMATION
  Report Type: 
  Country: None (occurrence: None)
  Receive Date: 20050608
  Receipt Date: 20050531
  Transmission Date: 20051028
  Serious: Yes (Disabling, Other)
  Sender: FDA-Public Use
  Company Number: SU-2005-003626

PATIENT
  Age: 87 Year
  Sex: Female

DRUGS (2)
  1. BENICAR HCT [Suspect]
     Indication: HYPERTENSION
     Dosage: 20.125 MG PO
     Route: 048
  2. ARICEPT [Suspect]
     Indication: DEMENTIA
     Dosage: 5 MG QD PO
     Route: 048
     Dates: start: 20050101, end: 20050401

REACTIONS (2)
  - DRUG INTERACTION [None]
  - FAECAL INCONTINENCE [None]
